FAERS Safety Report 13753913 (Version 2)
Quarter: 2017Q3

REPORT INFORMATION
  Report Type: Spontaneous
  Country: JP (occurrence: JP)
  Receive Date: 20170714
  Receipt Date: 20170908
  Transmission Date: 20171127
  Serious: Yes (Hospitalization, Other)
  Sender: FDA-Public Use
  Company Number: JP-SHIRE-JP201714780

PATIENT

DRUGS (2)
  1. ADVATE [Suspect]
     Active Substance: ANTIHEMOPHILIC FACTOR, HUMAN RECOMBINANT
     Indication: HAEMATOMA EVACUATION
     Dosage: UNK
     Route: 042
     Dates: start: 20170602
  2. ADVATE [Suspect]
     Active Substance: ANTIHEMOPHILIC FACTOR, HUMAN RECOMBINANT
     Dosage: UNK
     Route: 042
     Dates: start: 20170622, end: 20170629

REACTIONS (2)
  - Factor VIII inhibition [Not Recovered/Not Resolved]
  - Cerebral infarction [Unknown]

NARRATIVE: CASE EVENT DATE: 20170629
